FAERS Safety Report 5486455-2 (Version None)
Quarter: 2007Q4

REPORT INFORMATION
  Report Type: 
  Country: None (occurrence: None)
  Receive Date: 20071016
  Receipt Date: 20071010
  Transmission Date: 20080405
  Serious: Yes (Hospitalization)
  Sender: FDA-Public Use
  Company Number: A0687587A

PATIENT
  Age: 60 Year
  Sex: Female

DRUGS (3)
  1. BECLOMETHASONE DIPROPIONATE [Suspect]
     Indication: CHRONIC OBSTRUCTIVE PULMONARY DISEASE
     Dosage: 2PUFF TWICE PER DAY
     Route: 055
     Dates: start: 20071009, end: 20071010
  2. ELTROXIN [Suspect]
     Indication: HYPERTHYROIDISM
     Dosage: 50MCG PER DAY
     Route: 048
     Dates: start: 20070901
  3. ALKA SELTZER [Suspect]
     Dosage: 100MG UNKNOWN
     Route: 048
     Dates: start: 20071009, end: 20071009

REACTIONS (9)
  - ANGIOEDEMA [None]
  - DYSPHAGIA [None]
  - ERYTHEMA [None]
  - EYELIDS PRURITUS [None]
  - LIP OEDEMA [None]
  - PRURITUS [None]
  - RASH [None]
  - SKIN LESION [None]
  - TONGUE OEDEMA [None]
